FAERS Safety Report 4473004-0 (Version None)
Quarter: 2004Q4

REPORT INFORMATION
  Report Type: 
  Country: None (occurrence: None)
  Receive Date: 20041013
  Receipt Date: 20041006
  Transmission Date: 20050328
  Serious: Yes (Hospitalization)
  Sender: FDA-Public Use
  Company Number: CA-MERCK-0410CAN00184

PATIENT
  Sex: Male

DRUGS (4)
  1. [THERAPY UNSPECIFIED] [Concomitant]
     Indication: ANTICOAGULANT THERAPY
     Route: 051
  2. TYLENOL [Concomitant]
     Indication: PAIN
     Route: 065
  3. VIOXX [Suspect]
     Indication: ARTHRITIS
     Route: 048
  4. COUMADIN [Concomitant]
     Route: 065

REACTIONS (2)
  - CARDIAC DISORDER [None]
  - THROMBOSIS [None]
